FAERS Safety Report 11857621 (Version 1)
Quarter: 2015Q4

REPORT INFORMATION
  Report Type: Spontaneous
  Country: US (occurrence: None)
  Receive Date: 20151221
  Receipt Date: 20151221
  Transmission Date: 20160305
  Serious: Yes (Hospitalization)
  Sender: FDA-Public Use
  Company Number: None

PATIENT
  Age: 75 Year
  Sex: Male
  Weight: 54.2 kg

DRUGS (2)
  1. PROCARBAZINE [Suspect]
     Active Substance: PROCARBAZINE
     Indication: LYMPHOMA
     Route: 048
     Dates: start: 20150503, end: 20150824
  2. ETOPOSIDE. [Suspect]
     Active Substance: ETOPOSIDE
     Indication: LYMPHOMA
     Route: 048
     Dates: start: 20150503, end: 20150824

REACTIONS (5)
  - Fatigue [None]
  - Failure to thrive [None]
  - Leukopenia [None]
  - Hypotension [None]
  - Neutropenia [None]

NARRATIVE: CASE EVENT DATE: 20150824
